FAERS Safety Report 6164460-0 (Version None)
Quarter: 2009Q2

REPORT INFORMATION
  Report Type: 
  Country: None (occurrence: None)
  Receive Date: 20090421
  Receipt Date: 20090407
  Transmission Date: 20091009
  Serious: Yes (Hospitalization)
  Sender: FDA-Public Use
  Company Number: 233853K09USA

PATIENT
  Age: 50 Year
  Sex: Female

DRUGS (2)
  1. REBIF [Suspect]
     Indication: MULTIPLE SCLEROSIS
     Dosage: SUBCUTANEOUS
     Route: 058
     Dates: start: 20060719, end: 20090101
  2. UNSPECIFIED MEDICATIONS (ALL OTHER NON-THERAPEUTIC PRODUCTS) [Concomitant]

REACTIONS (5)
  - FAECAL INCONTINENCE [None]
  - FUNGAL INFECTION [None]
  - SECONDARY PROGRESSIVE MULTIPLE SCLEROSIS [None]
  - URINARY INCONTINENCE [None]
  - URINARY TRACT INFECTION [None]
